FAERS Safety Report 7119856-7 (Version None)
Quarter: 2010Q4

REPORT INFORMATION
  Report Type: 
  Country: None (occurrence: None)
  Receive Date: 20101123
  Receipt Date: 20100914
  Transmission Date: 20110411
  Serious: No
  Sender: FDA-Public Use
  Company Number: US-BRISTOL-MYERS SQUIBB COMPANY-15285000

PATIENT
  Age: 79 Year
  Sex: Male

DRUGS (9)
  1. ONGLYZA [Suspect]
  2. CRESTOR [Concomitant]
  3. CARVEDILOL [Concomitant]
  4. XANAX [Concomitant]
  5. SULAR [Concomitant]
  6. LISINOPRIL AND HYDROCHLOROTHIAZIDE [Concomitant]
  7. GLIPIZIDE [Concomitant]
  8. ACTOS [Concomitant]
     Dosage: ACTOS PLUS
  9. METFORMIN HCL [Concomitant]

REACTIONS (1)
  - DIZZINESS [None]
